FAERS Safety Report 14149039 (Version 1)
Quarter: 2017Q4

REPORT INFORMATION
  Report Type: Spontaneous
  Country: FR (occurrence: FR)
  Receive Date: 20171101
  Receipt Date: 20171101
  Transmission Date: 20180321
  Serious: Yes (Other)
  Sender: FDA-Public Use
  Company Number: FR-BAYER-2017-207163

PATIENT
  Age: 42 Year
  Sex: Female

DRUGS (1)
  1. MIRENA [Suspect]
     Active Substance: LEVONORGESTREL
     Indication: CONTRACEPTION
     Dosage: 20 MCG/24HR, CONT
     Route: 015
     Dates: start: 19970415, end: 20170905

REACTIONS (6)
  - Vertigo [Unknown]
  - Asthenia [Unknown]
  - Depression [Unknown]
  - Visual impairment [Unknown]
  - Back pain [Unknown]
  - Headache [Unknown]
